FAERS Safety Report 23080845 (Version 2)
Quarter: 2024Q1

REPORT INFORMATION
  Report Type: Spontaneous
  Country: US (occurrence: US)
  Receive Date: 20231018
  Receipt Date: 20240115
  Transmission Date: 20240410
  Serious: No
  Sender: FDA-Public Use
  Company Number: US-PFIZER INC-PV202300169853

PATIENT
  Age: 10 Year
  Sex: Male
  Weight: 26.304 kg

DRUGS (1)
  1. GENOTROPIN [Suspect]
     Active Substance: SOMATROPIN
     Indication: Growth hormone deficiency
     Dosage: 0.7 MG, 1X/DAY (^ONCE A DAY, ^MAY BE AT NIGHT^.^)
     Dates: start: 20231002

REACTIONS (5)
  - Abdominal pain upper [Recovering/Resolving]
  - Influenza like illness [Recovering/Resolving]
  - Arthralgia [Recovering/Resolving]
  - Eye pain [Recovering/Resolving]
  - Headache [Recovering/Resolving]

NARRATIVE: CASE EVENT DATE: 20231004
